FAERS Safety Report 18775523 (Version 1)
Quarter: 2021Q1

REPORT INFORMATION
  Report Type: Report from Study
  Country: US (occurrence: US)
  Receive Date: 20210122
  Receipt Date: 20210122
  Transmission Date: 20210419
  Serious: Yes (Death, Other)
  Sender: FDA-Public Use
  Company Number: US-BAYER-2021-021431

PATIENT
  Age: 92 Year
  Sex: Female
  Weight: 51.7 kg

DRUGS (4)
  1. ADEMPAS [Suspect]
     Active Substance: RIOCIGUAT
     Indication: PULMONARY ARTERIAL HYPERTENSION
     Dosage: UNK
     Route: 048
     Dates: start: 20141107
  2. OPSUMIT [Concomitant]
     Active Substance: MACITENTAN
  3. ELIQUIS [Concomitant]
     Active Substance: APIXABAN
  4. ADEMPAS [Suspect]
     Active Substance: RIOCIGUAT
     Indication: PULMONARY ARTERIAL HYPERTENSION
     Dosage: 2.5 MG, TID
     Route: 048

REACTIONS (3)
  - Cardiac failure congestive [None]
  - Death [Fatal]
  - Dyspnoea [None]

NARRATIVE: CASE EVENT DATE: 20210117
